FAERS Safety Report 13611543 (Version 4)
Quarter: 2017Q3

REPORT INFORMATION
  Report Type: Spontaneous
  Country: CA (occurrence: CA)
  Receive Date: 20170605
  Receipt Date: 20170717
  Transmission Date: 20171127
  Serious: Yes (Other)
  Sender: FDA-Public Use
  Company Number: CA-PFIZER INC-2017229352

PATIENT
  Age: 78 Year
  Sex: Male
  Weight: 93 kg

DRUGS (4)
  1. XYNTHA [Suspect]
     Active Substance: ANTIHEMOPHILIC FACTOR, HUMAN RECOMBINANT RESIDUES 743-1636 DELETED
     Dosage: 4000 IU, SINGLE
     Route: 042
     Dates: start: 20170524, end: 20170524
  2. XYNTHA [Suspect]
     Active Substance: ANTIHEMOPHILIC FACTOR, HUMAN RECOMBINANT RESIDUES 743-1636 DELETED
     Dosage: 4000 IU, DAILY (EACH AM)
     Route: 042
     Dates: start: 201706
  3. XYNTHA [Suspect]
     Active Substance: ANTIHEMOPHILIC FACTOR, HUMAN RECOMBINANT RESIDUES 743-1636 DELETED
     Dosage: 4000 UNK, 1X/DAY, AT MORNING
     Dates: start: 20170519, end: 20170523
  4. XYNTHA [Suspect]
     Active Substance: ANTIHEMOPHILIC FACTOR, HUMAN RECOMBINANT RESIDUES 743-1636 DELETED
     Indication: FACTOR VIII DEFICIENCY
     Dosage: UNK IU, UNK
     Route: 042

REACTIONS (10)
  - Asthenia [Not Recovered/Not Resolved]
  - Dizziness [Unknown]
  - Mobility decreased [Unknown]
  - Pain [Not Recovered/Not Resolved]
  - Bedridden [Unknown]
  - Constipation [Not Recovered/Not Resolved]
  - Hypotension [Unknown]
  - Haematuria [Not Recovered/Not Resolved]
  - Neoplasm progression [Unknown]
  - Urinary tract infection [Not Recovered/Not Resolved]

NARRATIVE: CASE EVENT DATE: 201705
